FAERS Safety Report 6751515-2 (Version None)
Quarter: 2010Q2

REPORT INFORMATION
  Report Type: 
  Country: None (occurrence: None)
  Receive Date: 20100602
  Receipt Date: 20100528
  Transmission Date: 20101027
  Serious: Yes (Other)
  Sender: FDA-Public Use
  Company Number: A0861951A

PATIENT
  Age: 57 Year
  Sex: Female

DRUGS (9)
  1. ALLI [Suspect]
     Indication: WEIGHT LOSS DIET
     Route: 048
  2. CRESTOR [Concomitant]
     Indication: BLOOD CHOLESTEROL
     Route: 048
  3. SYNTHROID [Concomitant]
     Indication: THYROID DISORDER
     Route: 048
  4. DEMEROL [Concomitant]
     Indication: RHEUMATOID ARTHRITIS
     Route: 048
  5. SOMA [Concomitant]
     Indication: MYALGIA
     Route: 048
  6. PROMETHAZINE [Concomitant]
     Indication: NAUSEA
     Route: 048
  7. CORGARD [Concomitant]
     Indication: CARDIAC FAILURE CONGESTIVE
     Route: 048
  8. MICARDIS [Concomitant]
     Indication: CARDIAC FAILURE CONGESTIVE
     Route: 048
  9. OXYGEN [Concomitant]
     Indication: EMPHYSEMA

REACTIONS (1)
  - HEPATIC ENZYME INCREASED [None]
